FAERS Safety Report 15439168 (Version 2)
Quarter: 2018Q4

REPORT INFORMATION
  Report Type: Spontaneous
  Country: US (occurrence: US)
  Receive Date: 20180928
  Receipt Date: 20181003
  Transmission Date: 20190204
  Serious: No
  Sender: FDA-Public Use
  Company Number: US-PFIZER INC-2018388416

PATIENT
  Age: 49 Year
  Sex: Female

DRUGS (1)
  1. LIPITOR [Suspect]
     Active Substance: ATORVASTATIN CALCIUM
     Dosage: UNK (THAT GOT 800MG OF IT, AND PATIENT WAS ONLY TAKING 9)

REACTIONS (2)
  - Prescribed overdose [Unknown]
  - Feeling abnormal [Unknown]
